FAERS Safety Report 8804484 (Version 1)
Quarter: 2012Q4

REPORT INFORMATION
  Report Type: 
  Country: US (occurrence: US)
  Receive Date: 20120924
  Receipt Date: 20120924
  Transmission Date: 20130627
  Serious: Yes (Death, Other)
  Sender: FDA-Public Use
  Company Number: US-ROCHE-1104176

PATIENT
  Sex: Female

DRUGS (3)
  1. AVASTIN [Suspect]
     Indication: BREAST CANCER FEMALE
     Route: 065
     Dates: start: 20060202
  2. AVASTIN [Suspect]
     Route: 065
     Dates: start: 20060226
  3. TAXOTERE [Concomitant]

REACTIONS (5)
  - Death [Fatal]
  - Disease progression [Unknown]
  - Pain [Unknown]
  - Asthenia [Unknown]
  - Decreased appetite [Unknown]
